FAERS Safety Report 8415191-5 (Version None)
Quarter: 2012Q2

REPORT INFORMATION
  Report Type: 
  Country: None (occurrence: None)
  Receive Date: 20120606
  Receipt Date: 20120601
  Transmission Date: 20120825
  Serious: No
  Sender: FDA-Public Use
  Company Number: US-PFIZER INC-2012132688

PATIENT
  Sex: Female
  Weight: 81.2 kg

DRUGS (12)
  1. VASOTEC [Concomitant]
     Indication: HYPERTENSION
     Dosage: 20 MG, 2X/DAY
  2. CLONIDINE [Concomitant]
     Indication: HYPERTENSION
     Dosage: 0.2 MG, 2X/DAY
  3. ZETIA [Concomitant]
     Indication: BLOOD CHOLESTEROL INCREASED
     Dosage: 10 MG, UNK
  4. LOVAZA [Concomitant]
     Dosage: UNK, 3X/DAY
  5. COUMADIN [Concomitant]
     Dosage: UNK
  6. BIOTIN [Concomitant]
     Dosage: UNK, 1X/DAY
  7. TIKOSYN [Suspect]
     Indication: ATRIAL FIBRILLATION
     Dosage: 0.5 MG, 2X/DAY
     Route: 048
     Dates: start: 20110301
  8. POTASSIUM [Concomitant]
     Dosage: 20 MEQ, 2X/DAY
  9. LIPITOR [Concomitant]
     Indication: BLOOD CHOLESTEROL INCREASED
     Dosage: 20 MG, UNK
  10. TOPROL-XL [Concomitant]
     Indication: HYPERTENSION
     Dosage: 50 MG, UNK
  11. GLIPIZIDE [Concomitant]
     Indication: DIABETES MELLITUS
     Dosage: UNK
  12. ACETYLSALICYLIC ACID [Concomitant]
     Dosage: 81 MG, UNK

REACTIONS (1)
  - PAIN [None]
